FAERS Safety Report 11828743 (Version 1)
Quarter: 2015Q4

REPORT INFORMATION
  Report Type: Report from Study
  Country: FR (occurrence: FR)
  Receive Date: 20151211
  Receipt Date: 20151211
  Transmission Date: 20160305
  Serious: Yes (Hospitalization, Other)
  Sender: FDA-Public Use
  Company Number: FR-BRISTOL-MYERS SQUIBB COMPANY-BMS-2015-031050

PATIENT
  Age: 50 Year
  Sex: Male
  Weight: 83 kg

DRUGS (13)
  1. PARACETAMOL [Concomitant]
     Active Substance: ACETAMINOPHEN
     Indication: ANALGESIC THERAPY
     Dosage: 500 MG, TID
     Route: 048
     Dates: start: 20141201
  2. FUROSEMIDE. [Concomitant]
     Active Substance: FUROSEMIDE
     Indication: POLYURIA
     Dosage: 40 MG, UNK
     Route: 065
     Dates: start: 20140912
  3. PROPRANOLOL [Concomitant]
     Active Substance: PROPRANOLOL\PROPRANOLOL HYDROCHLORIDE
     Indication: PRODUCT USED FOR UNKNOWN INDICATION
     Dosage: 0.5 DF, UNK
     Route: 065
  4. DUPHALAC [Concomitant]
     Active Substance: LACTULOSE
     Indication: PRODUCT USED FOR UNKNOWN INDICATION
     Dosage: 2 DF, QD
     Route: 065
  5. VIALEBEX [Concomitant]
     Active Substance: ALBUMIN (HUMAN)
     Indication: PRODUCT USED FOR UNKNOWN INDICATION
     Dosage: 2 OTHER, QD
     Route: 065
  6. ALDACTONE [Concomitant]
     Active Substance: SPIRONOLACTONE
     Indication: POLYURIA
     Dosage: UNK
     Route: 065
  7. SOFOSBUVIR [Concomitant]
     Active Substance: SOFOSBUVIR
     Indication: HEPATITIS C
     Dosage: 400 MG, QD
     Route: 048
     Dates: start: 20141028, end: 20150413
  8. ALDACTAZINE [Concomitant]
     Active Substance: ALTHIAZIDE\SPIRONOLACTONE
     Indication: PRODUCT USED FOR UNKNOWN INDICATION
     Dosage: 100 MG, QD
     Route: 065
     Dates: start: 20140912
  9. INEXIUM                            /01479302/ [Concomitant]
     Active Substance: ESOMEPRAZOLE MAGNESIUM
     Indication: PRODUCT USED FOR UNKNOWN INDICATION
     Dosage: 20 MG, QD
     Route: 065
  10. LASILIX                            /00032601/ [Concomitant]
     Active Substance: FUROSEMIDE
     Indication: PRODUCT USED FOR UNKNOWN INDICATION
     Dosage: 1 DF, UNK
     Route: 065
  11. DACLATASVIR DIHYDROCHLORIDE [Suspect]
     Active Substance: DACLATASVIR DIHYDROCHLORIDE
     Indication: HEPATITIS C
     Dosage: 60 MG, QD
     Route: 048
     Dates: start: 20141028, end: 20150413
  12. SPECIAFOLDINE [Concomitant]
     Active Substance: FOLIC ACID
     Indication: PRODUCT USED FOR UNKNOWN INDICATION
     Dosage: 5 MG, QD
     Route: 065
  13. NUTRISON ENERGY MULTI FIBRE [Concomitant]
     Indication: PRODUCT USED FOR UNKNOWN INDICATION
     Dosage: 1 L, QH
     Route: 065

REACTIONS (11)
  - Hepatic encephalopathy [Unknown]
  - Liver transplant [Unknown]
  - Hepatic failure [Recovered/Resolved]
  - Omphalectomy [Unknown]
  - Anaemia macrocytic [Unknown]
  - Tooth extraction [Unknown]
  - Peritonitis [Recovering/Resolving]
  - Strangulated umbilical hernia [Recovered/Resolved]
  - Gastrointestinal necrosis [Unknown]
  - Colonoscopy [Unknown]
  - Asymptomatic bacteriuria [Unknown]

NARRATIVE: CASE EVENT DATE: 20141121
